FAERS Safety Report 17510976 (Version 1)
Quarter: 2020Q1

REPORT INFORMATION
  Report Type: Spontaneous
  Country: US (occurrence: US)
  Receive Date: 20200306
  Receipt Date: 20200306
  Transmission Date: 20200409
  Serious: Yes (Other)
  Sender: FDA-Public Use
  Company Number: US-COOPERSURGICAL, INC.-US-2020CPS000589

PATIENT
  Age: 33 Year
  Sex: Female

DRUGS (1)
  1. PARAGARD T 380A [Suspect]
     Active Substance: COPPER
     Indication: PRODUCT USED FOR UNKNOWN INDICATION
     Dosage: UNK
     Route: 015
     Dates: start: 20170831, end: 201802

REACTIONS (9)
  - Malaise [Unknown]
  - Device toxicity [Unknown]
  - Psychiatric symptom [Unknown]
  - Alopecia [Unknown]
  - Anxiety [Unknown]
  - Autoimmune thyroiditis [Unknown]
  - Weight decreased [Unknown]
  - Dark circles under eyes [Unknown]
  - Dry skin [Unknown]

NARRATIVE: CASE EVENT DATE: 2017
